FAERS Safety Report 5627057-4 (Version None)
Quarter: 2008Q1

REPORT INFORMATION
  Report Type: 
  Country: None (occurrence: None)
  Receive Date: 20080116
  Receipt Date: 20070522
  Transmission Date: 20080703
  Serious: Yes (Other)
  Sender: FDA-Public Use
  Company Number: BDI-009607

PATIENT
  Sex: Female

DRUGS (3)
  1. PROHANCE [Suspect]
     Indication: EYE OEDEMA
     Dosage: 3 ML ONCE IV
     Route: 042
     Dates: start: 20070521, end: 20070521
  2. PROHANCE [Suspect]
     Indication: HEADACHE
     Dosage: 3 ML ONCE IV
     Route: 042
     Dates: start: 20070521, end: 20070521
  3. PROHANCE [Suspect]
     Indication: NUCLEAR MAGNETIC RESONANCE IMAGING BRAIN
     Dosage: 3 ML ONCE IV
     Route: 042
     Dates: start: 20070521, end: 20070521

REACTIONS (1)
  - HYPERSENSITIVITY [None]
